FAERS Safety Report 11447613 (Version 1)
Quarter: 2015Q3

REPORT INFORMATION
  Report Type: Spontaneous
  Country: BR (occurrence: BR)
  Receive Date: 20150902
  Receipt Date: 20150902
  Transmission Date: 20151125
  Serious: Yes (Other)
  Sender: FDA-Public Use
  Company Number: BR-DSJP-DSE-2015-127014

PATIENT

DRUGS (4)
  1. PURAN [Suspect]
     Active Substance: LEVOTHYROXINE SODIUM
     Indication: THYROID DISORDER
     Dosage: 50, QD
     Route: 048
  2. SINVASTATINA [Suspect]
     Active Substance: SIMVASTATIN
     Indication: BLOOD CHOLESTEROL
     Dosage: 40 MG, UNK
     Route: 048
  3. VERAPAMIL [Suspect]
     Active Substance: VERAPAMIL HYDROCHLORIDE
     Indication: CARDIAC DISORDER
     Dosage: 120 MG, QD
     Route: 048
  4. BENICAR HCT [Suspect]
     Active Substance: HYDROCHLOROTHIAZIDE\OLMESARTAN MEDOXOMIL
     Indication: HYPERTENSION
     Dosage: 20/12.5 MG, QD
     Dates: end: 2010

REACTIONS (10)
  - Cerebrovascular accident [Recovered/Resolved]
  - Malaise [Recovered/Resolved]
  - Gastrooesophageal reflux disease [Unknown]
  - Gastric disorder [Unknown]
  - Peripheral swelling [Not Recovered/Not Resolved]
  - Oesophageal ulcer [Recovered/Resolved]
  - Catheter placement [Recovered/Resolved]
  - Polyuria [Not Recovered/Not Resolved]
  - Chest pain [Recovered/Resolved]
  - Headache [Recovered/Resolved]

NARRATIVE: CASE EVENT DATE: 2009
